FAERS Safety Report 12070179 (Version 2)
Quarter: 2016Q1

REPORT INFORMATION
  Report Type: Spontaneous
  Country: BR (occurrence: BR)
  Receive Date: 20160211
  Receipt Date: 20160212
  Transmission Date: 20160526
  Serious: Yes (Other)
  Sender: FDA-Public Use
  Company Number: BR-BAYER-2016-024945

PATIENT
  Age: 50 Year
  Sex: Male

DRUGS (1)
  1. SORAFENIB (RAF KINASE INHIBITOR) [Suspect]
     Active Substance: SORAFENIB

REACTIONS (4)
  - Portal hypertension [None]
  - Ascites [None]
  - Oesophageal varices haemorrhage [None]
  - Jaundice [None]
